FAERS Safety Report 9459300 (Version 1)
Quarter: 2013Q3

REPORT INFORMATION
  Report Type: Spontaneous
  Country: JP (occurrence: JP)
  Receive Date: 20130815
  Receipt Date: 20130815
  Transmission Date: 20140515
  Serious: Yes (Other)
  Sender: FDA-Public Use
  Company Number: JP-MYLANLABS-2013S1017470

PATIENT
  Age: 72 Year
  Sex: Female

DRUGS (9)
  1. SORAFENIB [Suspect]
     Indication: HEPATOCELLULAR CARCINOMA
     Dosage: 400MG DAILY
     Route: 065
     Dates: start: 201104
  2. SORAFENIB [Suspect]
     Indication: HEPATOCELLULAR CARCINOMA
     Dosage: 400MG DAILY
     Route: 065
  3. PREDNISOLONE [Interacting]
     Indication: PROPHYLAXIS
     Dosage: INITIAL DOSE 20MG, TAPERED BY 5MG EVERY 14 DAYS
     Route: 048
  4. URSODEOXYCHOLIC ACID [Concomitant]
     Dosage: 600 MG/DAY
     Route: 065
  5. VOGLIBOSE [Concomitant]
     Dosage: 0.6 MG/DAY
     Route: 065
  6. GLIMEPIRIDE [Concomitant]
     Dosage: 2 MG/DAY
     Route: 065
  7. CARBOCISTEINE [Concomitant]
     Dosage: 1500 MG/DAY
     Route: 065
  8. RABEPRAZOLE [Concomitant]
     Dosage: 10 MG/DAY
     Route: 065
  9. LEVOTHYROXINE SODIUM [Concomitant]
     Dosage: 50 MICROG/DAY
     Route: 065

REACTIONS (4)
  - Drug eruption [Recovered/Resolved]
  - Stomatitis [Recovered/Resolved]
  - Drug level increased [Recovered/Resolved]
  - Drug interaction [Recovered/Resolved]
